FAERS Safety Report 17550410 (Version 1)
Quarter: 2020Q1

REPORT INFORMATION
  Report Type: Spontaneous
  Country: US (occurrence: US)
  Receive Date: 20200317
  Receipt Date: 20200317
  Transmission Date: 20200409
  Serious: No
  Sender: FDA-Public Use
  Company Number: None

PATIENT
  Age: 54 Year
  Sex: Female

DRUGS (1)
  1. BICILLIN L-A [Suspect]
     Active Substance: PENICILLIN G BENZATHINE
     Dosage: ?          OTHER DOSE:1SYRINGE;OTHER FREQUENCY:OTHER;?
     Route: 030
     Dates: start: 202001

REACTIONS (1)
  - Needle issue [None]

NARRATIVE: CASE EVENT DATE: 20200316
